FAERS Safety Report 7900176-5 (Version None)
Quarter: 2011Q4

REPORT INFORMATION
  Report Type: 
  Country: None (occurrence: None)
  Receive Date: 20111108
  Receipt Date: 20111031
  Transmission Date: 20120403
  Serious: No
  Sender: FDA-Public Use
  Company Number: US-BIOGENIDEC-2011BI041790

PATIENT
  Sex: Female

DRUGS (7)
  1. VITAMIN D [Concomitant]
  2. TYSABRI [Suspect]
     Indication: MULTIPLE SCLEROSIS
     Route: 042
     Dates: start: 20111003, end: 20111003
  3. LEVETIRACETAM [Concomitant]
     Indication: CONVULSION
  4. CLONAZEPAM [Concomitant]
     Indication: CONVULSION
  5. METOCLOPRAMIDE [Concomitant]
     Indication: MIGRAINE
  6. DETROLA [Concomitant]
     Indication: URINARY INCONTINENCE
  7. TOPIRAMATE [Concomitant]
     Indication: CONVULSION

REACTIONS (3)
  - ANXIETY [None]
  - CONFUSIONAL STATE [None]
  - MEMORY IMPAIRMENT [None]
